FAERS Safety Report 13445874 (Version 1)
Quarter: 2017Q2

REPORT INFORMATION
  Report Type: Spontaneous
  Country: US (occurrence: US)
  Receive Date: 20170417
  Receipt Date: 20170417
  Transmission Date: 20170830
  Serious: No
  Sender: FDA-Public Use
  Company Number: US-BION-005904

PATIENT
  Age: 83 Year
  Sex: Female
  Weight: 73 kg

DRUGS (2)
  1. TYLENOL [Concomitant]
     Active Substance: ACETAMINOPHEN
  2. ALEVE [Suspect]
     Active Substance: NAPROXEN SODIUM
     Indication: PAIN
     Dosage: 3 DAILY: 2 IN AM AND 1 IN EVENING
     Route: 048
     Dates: start: 201610, end: 20170111

REACTIONS (1)
  - Pruritus generalised [Recovering/Resolving]

NARRATIVE: CASE EVENT DATE: 20170110
